FAERS Safety Report 10193228 (Version 1)
Quarter: 2014Q2

REPORT INFORMATION
  Report Type: Spontaneous
  Country: US (occurrence: US)
  Receive Date: 20140524
  Receipt Date: 20140524
  Transmission Date: 20141212
  Serious: No
  Sender: FDA-Public Use
  Company Number: US-SA-2013SA119991

PATIENT
  Sex: Female

DRUGS (3)
  1. LANTUS SOLOSTAR [Suspect]
     Dosage: DOSE:46 UNIT(S)
     Route: 051
     Dates: start: 201307
  2. SOLOSTAR [Concomitant]
     Dates: start: 201307
  3. VICTOZA [Concomitant]
     Route: 065

REACTIONS (1)
  - Injection site bruising [Not Recovered/Not Resolved]
